FAERS Safety Report 24316776 (Version 2)
Quarter: 2024Q3

REPORT INFORMATION
  Report Type: Spontaneous
  Country: US (occurrence: US)
  Receive Date: 20240913
  Receipt Date: 20240922
  Transmission Date: 20241016
  Serious: No
  Sender: GLAXOSMITHKLINE
  Company Number: US-GSKCCFUS-Case-02096506_AE-115787

PATIENT
  Sex: Female

DRUGS (2)
  1. INCRUSE ELLIPTA [Suspect]
     Active Substance: UMECLIDINIUM BROMIDE
     Indication: Chronic obstructive pulmonary disease
     Dosage: 62.5 UG
     Route: 055
  2. INCRUSE ELLIPTA [Suspect]
     Active Substance: UMECLIDINIUM BROMIDE
     Indication: Chronic obstructive pulmonary disease
     Dosage: UNK

REACTIONS (3)
  - Product dose omission issue [Unknown]
  - Wrong technique in device usage process [Unknown]
  - Product complaint [Unknown]
